FAERS Safety Report 18451963 (Version 1)
Quarter: 2020Q4

REPORT INFORMATION
  Report Type: Spontaneous
  Country: JP (occurrence: JP)
  Receive Date: 20201102
  Receipt Date: 20201102
  Transmission Date: 20210114
  Serious: Yes (Hospitalization)
  Sender: FDA-Public Use
  Company Number: JP-009507513-2010JPN002774J

PATIENT
  Age: 84 Year
  Sex: Male

DRUGS (1)
  1. MENESIT TABLETS - 100 [Suspect]
     Active Substance: CARBIDOPA\LEVODOPA
     Dosage: 50 MILLIGRAM, BID
     Route: 048

REACTIONS (3)
  - Product use issue [Unknown]
  - Condition aggravated [Unknown]
  - Dysphagia [Unknown]
